FAERS Safety Report 8309333-X (Version None)
Quarter: 2012Q2

REPORT INFORMATION
  Report Type: 
  Country: None (occurrence: None)
  Receive Date: 20120425
  Receipt Date: 20120418
  Transmission Date: 20120825
  Serious: Yes (Death, Hospitalization, Other)
  Sender: FDA-Public Use
  Company Number: DE-ASTRAZENECA-2012SE25496

PATIENT
  Age: 88 Year
  Sex: Female

DRUGS (6)
  1. SEROQUEL [Suspect]
     Indication: MOOD DISORDER DUE TO A GENERAL MEDICAL CONDITION
     Route: 048
  2. MIRTAZAPINE [Suspect]
  3. MIRTAZAPINE [Suspect]
     Dosage: GENERIC
  4. LORAZEPAM [Suspect]
  5. RISPERDAL [Suspect]
  6. ZOLPIDEM TARTRATE [Suspect]

REACTIONS (4)
  - DEATH [None]
  - APATHY [None]
  - HYPORESPONSIVE TO STIMULI [None]
  - OFF LABEL USE [None]
